FAERS Safety Report 6353346-4 (Version None)
Quarter: 2009Q3

REPORT INFORMATION
  Report Type: 
  Country: None (occurrence: None)
  Receive Date: 20090912
  Receipt Date: 20090622
  Transmission Date: 20100115
  Serious: No
  Sender: FDA-Public Use
  Company Number: US-ABBOTT-08P-163-0475779-00

PATIENT
  Sex: Female
  Weight: 46.308 kg

DRUGS (4)
  1. HUMIRA [Suspect]
     Indication: CROHN'S DISEASE
     Route: 058
     Dates: start: 20080827
  2. BUDESONIDE [Concomitant]
     Indication: CROHN'S DISEASE
     Dosage: 9 MG DAILY
     Route: 048
     Dates: start: 20080801
  3. AZATHIOPRINE [Concomitant]
     Indication: CROHN'S DISEASE
     Dosage: 50 MG DAILY
     Route: 048
  4. SIMVASTATIN [Concomitant]
     Indication: BLOOD CHOLESTEROL
     Dosage: 20 MG DAILY
     Route: 048
     Dates: start: 20060101

REACTIONS (1)
  - INCORRECT DOSE ADMINISTERED [None]
